FAERS Safety Report 18522939 (Version 1)
Quarter: 2020Q4

REPORT INFORMATION
  Report Type: Not Available
  Country: DE (occurrence: DE)
  Receive Date: 20201119
  Receipt Date: 20201119
  Transmission Date: 20210114
  Serious: Yes (Congenital Anomaly, Other)
  Sender: FDA-Public Use
  Company Number: DE-TEVA-2020-DE-1849472

PATIENT
  Age: 1 Day
  Sex: Female
  Weight: 3.17 kg

DRUGS (4)
  1. ASPIRIN. [Concomitant]
     Active Substance: ASPIRIN
     Indication: PROPHYLAXIS
     Dosage: 150 MILLIGRAM DAILY;
     Route: 064
     Dates: start: 20191129, end: 20200415
  2. AMLODIPINE [Suspect]
     Active Substance: AMLODIPINE BESYLATE
     Indication: HYPERTENSION
     Dosage: 5 MILLIGRAM DAILY;
     Route: 064
     Dates: start: 20190830, end: 20200605
  3. METOPROLOL. [Suspect]
     Active Substance: METOPROLOL
     Indication: HYPERTENSION
     Dosage: 200 [MG / D (UP TO 100)] / DOSAGE WAS INCREASED TO 2X100 MG AT GW 32 5/7
     Route: 064
     Dates: start: 20190830, end: 20200605
  4. L-THYROXIN [Concomitant]
     Active Substance: LEVOTHYROXINE SODIUM
     Indication: HYPOTHYROIDISM
     Dosage: 125 MICROGRAM DAILY;
     Route: 064
     Dates: start: 20190830, end: 20200605

REACTIONS (11)
  - Congenital uterine anomaly [Not Recovered/Not Resolved]
  - Congenital acrochordon [Unknown]
  - Anal atresia [Unknown]
  - Atrial septal defect [Unknown]
  - Intestinal malrotation [Unknown]
  - Tethered cord syndrome [Unknown]
  - Foetal exposure during pregnancy [Unknown]
  - Congenital hydronephrosis [Unknown]
  - Bone deformity [Not Recovered/Not Resolved]
  - Vitello-intestinal duct remnant [Unknown]
  - Rectourethral fistula [Unknown]

NARRATIVE: CASE EVENT DATE: 20200605
